FAERS Safety Report 7743443-0 (Version None)
Quarter: 2011Q3

REPORT INFORMATION
  Report Type: 
  Country: None (occurrence: None)
  Receive Date: 20110912
  Receipt Date: 20110907
  Transmission Date: 20111222
  Serious: Yes (Death, Other)
  Sender: FDA-Public Use
  Company Number: PHHY2009IT57437

PATIENT
  Sex: Male

DRUGS (1)
  1. ZOMETA [Suspect]
     Dosage: 4 MG, EVERY 3 WEEKS
     Route: 042
     Dates: start: 20091109

REACTIONS (2)
  - FALL [None]
  - DEATH [None]
